FAERS Safety Report 6896799-5 (Version None)
Quarter: 2010Q3

REPORT INFORMATION
  Report Type: 
  Country: None (occurrence: None)
  Receive Date: 20100802
  Receipt Date: 20070326
  Transmission Date: 20110219
  Serious: No
  Sender: FDA-Public Use
  Company Number: US-PFIZER INC-2007005931

PATIENT
  Sex: Male
  Weight: 68.5 kg

DRUGS (7)
  1. LYRICA [Suspect]
     Indication: FIBROMYALGIA
     Dates: start: 20061101
  2. COREG [Concomitant]
  3. ALTACE [Concomitant]
     Dates: start: 20060101
  4. PLAVIX [Concomitant]
     Dates: start: 20040101
  5. ACETYLSALICYLIC ACID SRT [Concomitant]
     Dates: start: 20040101
  6. OXYCODONE [Concomitant]
  7. CHLORTHALIDONE [Concomitant]
     Dates: start: 20040101

REACTIONS (3)
  - MALAISE [None]
  - SLUGGISHNESS [None]
  - WEIGHT INCREASED [None]
